FAERS Safety Report 8303835-8 (Version None)
Quarter: 2012Q2

REPORT INFORMATION
  Report Type: 
  Country: None (occurrence: None)
  Receive Date: 20120423
  Receipt Date: 20120416
  Transmission Date: 20120825
  Serious: Yes (Death, Hospitalization, Other)
  Sender: FDA-Public Use
  Company Number: PHEH2007US016479

PATIENT
  Sex: Male
  Weight: 85 kg

DRUGS (3)
  1. EXJADE [Suspect]
     Indication: IRON OVERLOAD
     Dosage: 500 MG, QD
     Route: 048
     Dates: start: 20070925
  2. NEUPOGEN [Concomitant]
     Dosage: 480 UG, WEEKLY
  3. PROCRIT [Concomitant]
     Dosage: 6000 U, ONCE PER WEEK

REACTIONS (7)
  - PULMONARY MASS [None]
  - DECREASED APPETITE [None]
  - FATIGUE [None]
  - CARDIAC FAILURE CONGESTIVE [None]
  - SYNCOPE [None]
  - RENAL FAILURE ACUTE [None]
  - WEIGHT DECREASED [None]
